FAERS Safety Report 9405370 (Version 4)
Quarter: 2014Q2

REPORT INFORMATION
  Report Type: Spontaneous
  Country: GB (occurrence: GB)
  Receive Date: 20130717
  Receipt Date: 20140501
  Transmission Date: 20141212
  Serious: Yes (Hospitalization, Other)
  Sender: FDA-Public Use
  Company Number: GB-ACTAVIS-2013-12430

PATIENT
  Age: 2 Year
  Sex: Female

DRUGS (40)
  1. CYCLOPHOSPHAMIDE (UNKNOWN) [Suspect]
     Indication: RHABDOMYOSARCOMA
     Dosage: UNK, EVERY 2 DAYS
     Route: 048
     Dates: start: 20120301
  2. CYCLOPHOSPHAMIDE (UNKNOWN) [Suspect]
     Dosage: UNK
     Route: 048
     Dates: start: 20120623
  3. CYCLOPHOSPHAMIDE (UNKNOWN) [Suspect]
     Dosage: UNK
     Route: 048
     Dates: start: 20120511
  4. CYCLOPHOSPHAMIDE (UNKNOWN) [Suspect]
     Dosage: UNK
     Route: 048
     Dates: start: 20120907
  5. DOXORUBICIN (UNKNOWN) [Suspect]
     Indication: SARCOMA METASTATIC
     Dosage: 30 MG/M2, UNKNOWN, SAE WAS TAKEN ON  31/AUG/2011
     Route: 042
     Dates: start: 20110712
  6. VINCRISTINE (UNKNOWN) [Suspect]
     Indication: SARCOMA METASTATIC
     Dosage: 8, 15 OF CYCLE, LAST DOSE PRIOR TO SAE 23-NOV-2011
     Route: 050
     Dates: start: 20110712
  7. VINORELBINE (UNKNOWN) [Suspect]
     Indication: RHABDOMYOSARCOMA
     Dosage: 11 MG, DAILY, 29/AUG/2012, 08/MAY/2012
     Route: 050
     Dates: start: 20120301
  8. BEVACIZUMAB [Suspect]
     Indication: SARCOMA METASTATIC
     Dosage: 65 MG, DAILY
     Route: 042
     Dates: start: 20110712
  9. LYOVAC COSMEGEN [Suspect]
     Indication: SARCOMA METASTATIC
     Dosage: 0.8 MG,LAST DOSE PRIOR TO SAE WAS TAKEN ON 30/AUG/2013
     Route: 050
     Dates: start: 20110712
  10. IFOSFAMIDE [Suspect]
     Indication: SARCOMA METASTATIC
     Dosage: UNK
     Route: 042
     Dates: start: 20110712
  11. MESNA [Suspect]
     Indication: SARCOMA METASTATIC
     Dosage: 4.41 G, DAILY, 21/SEP/2011
     Route: 050
     Dates: start: 20110712
  12. MESNA [Suspect]
     Dosage: 1.9 G, EVERY 2 DAYS
     Route: 050
  13. MESNA [Suspect]
     Dosage: , TAKEN ON 31-AUG-2011UNK, DAILY
     Route: 042
     Dates: start: 20110712
  14. CEFIXIME [Concomitant]
     Indication: PRODUCT USED FOR UNKNOWN INDICATION
     Dosage: 100 MG, UNKNOWN
     Route: 065
     Dates: start: 20120417
  15. CO-TRIMOXAZOLE                     /00086101/ [Concomitant]
     Indication: PRODUCT USED FOR UNKNOWN INDICATION
     Dosage: 240 MG, UNKNOWN
     Route: 048
     Dates: start: 20110716
  16. DIHYDROCODEINE [Concomitant]
     Indication: PRODUCT USED FOR UNKNOWN INDICATION
     Dosage: 5 MG, UNKNOWN
     Route: 048
     Dates: start: 20110928
  17. DOCUSATE [Concomitant]
     Indication: PRODUCT USED FOR UNKNOWN INDICATION
     Dosage: 37.5 MG, TID
     Route: 048
     Dates: start: 20110714
  18. DOCUSATE [Concomitant]
     Dosage: 25 MG, TID
     Route: 065
     Dates: start: 20111125
  19. DOCUSATE [Concomitant]
     Dosage: 12.5 MG, UNKNOWN
     Route: 065
     Dates: start: 20111230
  20. FILGRASTIM [Concomitant]
     Indication: PRODUCT USED FOR UNKNOWN INDICATION
     Dosage: 60 MICROMOLES DAILY
     Route: 042
     Dates: start: 20110903
  21. FLUCONAZOLE [Concomitant]
     Indication: PRODUCT USED FOR UNKNOWN INDICATION
     Dosage: UNK
     Route: 042
  22. GRANULOCYTE COLONY-STIMULATING FACTOR NOS [Concomitant]
     Indication: PRODUCT USED FOR UNKNOWN INDICATION
     Dosage: UNK
     Route: 050
     Dates: start: 20110903
  23. GRANULOCYTE COLONY-STIMULATING FACTOR NOS [Concomitant]
     Dosage: 60 MICROMOLES, DAILY
     Route: 050
     Dates: start: 20110924
  24. GENTAMICIN [Concomitant]
     Indication: PRODUCT USED FOR UNKNOWN INDICATION
     Dosage: 83 MG, DAILY
     Route: 050
     Dates: start: 20110817, end: 20110824
  25. IRINOTECAN [Concomitant]
     Indication: PRODUCT USED FOR UNKNOWN INDICATION
     Dosage: 3 MG, UNKNOWN
     Route: 065
     Dates: start: 20120915
  26. LEVOMEPROMAZINE [Concomitant]
     Indication: PRODUCT USED FOR UNKNOWN INDICATION
     Dosage: 2.6 MG, UNKNOWN
     Route: 042
     Dates: start: 20110713
  27. LEVOMEPROMAZINE [Concomitant]
     Dosage: 2.4 MG, BID
     Route: 065
     Dates: start: 20111125, end: 20111127
  28. MORPHINE SULFATE [Concomitant]
     Indication: PRODUCT USED FOR UNKNOWN INDICATION
     Dosage: UNK
     Route: 048
     Dates: start: 20110817
  29. MOVICOL                            /01749801/ [Concomitant]
     Indication: PRODUCT USED FOR UNKNOWN INDICATION
     Dosage: UNK
     Route: 065
     Dates: start: 20110820
  30. MOVICOL                            /01749801/ [Concomitant]
     Dosage: UNK
     Route: 065
     Dates: start: 20110901, end: 20110907
  31. MOVICOL                            /01749801/ [Concomitant]
     Dosage: UNK
     Route: 065
     Dates: start: 20120326
  32. ONDANSETRON [Concomitant]
     Indication: PRODUCT USED FOR UNKNOWN INDICATION
     Dosage: 9 MG, UNKNOWN
     Route: 065
     Dates: start: 20110712
  33. ONDANSETRON [Concomitant]
     Dosage: 3 MG, PRN
     Route: 048
     Dates: start: 20110817
  34. ONDANSETRON [Concomitant]
     Dosage: 2.8 MG, UNKNOWN
     Route: 048
     Dates: start: 20110901, end: 20110907
  35. ONDANSETRON [Concomitant]
     Dosage: 5 MG, UNKNOWN
     Route: 048
     Dates: start: 20110927
  36. ONDANSETRON [Concomitant]
     Dosage: 3 MG, TID
     Route: 065
     Dates: start: 20111125, end: 20111129
  37. ONDANSETRON [Concomitant]
     Dosage: 6 MG, UNKNOWN
     Route: 065
     Dates: start: 20120915
  38. PARACETAMOL [Concomitant]
     Indication: PRODUCT USED FOR UNKNOWN INDICATION
     Dosage: 220 MG, DAILY
     Route: 048
     Dates: start: 20110817
  39. PIPERACILLIN + TAZOBACTAM [Concomitant]
     Indication: PRODUCT USED FOR UNKNOWN INDICATION
     Dosage: 1070 MG, QID
     Route: 042
     Dates: start: 20110817, end: 20110824
  40. TEMOZOLOMIDE [Concomitant]
     Indication: PRODUCT USED FOR UNKNOWN INDICATION
     Dosage: 93 MG, UNKNOWN
     Route: 065
     Dates: start: 20120915

REACTIONS (5)
  - Febrile neutropenia [Recovered/Resolved]
  - Mucosal inflammation [Recovered/Resolved]
  - Epistaxis [Recovered/Resolved]
  - Candida test positive [Recovered/Resolved]
  - Epistaxis [Recovered/Resolved]
